FAERS Safety Report 4733859-9 (Version None)
Quarter: 2005Q3

REPORT INFORMATION
  Report Type: 
  Country: None (occurrence: None)
  Receive Date: 20050803
  Receipt Date: 20050315
  Transmission Date: 20060218
  Serious: Yes (Hospitalization)
  Sender: FDA-Public Use
  Company Number: US-MERCK-0503USA03203

PATIENT
  Age: 57 Year
  Sex: Male
  Weight: 109 kg

DRUGS (6)
  1. VIOXX [Suspect]
     Indication: RHEUMATOID ARTHRITIS
     Route: 048
     Dates: start: 20010301, end: 20010925
  2. PREDNISONE [Concomitant]
     Route: 065
  3. METHOTREXATE [Concomitant]
     Route: 065
     Dates: start: 19980101
  4. ASPIRIN [Concomitant]
     Route: 048
     Dates: start: 20010301
  5. PLAVIX [Concomitant]
     Route: 065
     Dates: start: 20010101
  6. TYLENOL (CAPLET) [Concomitant]
     Route: 065
     Dates: start: 19990101

REACTIONS (2)
  - CEREBROVASCULAR ACCIDENT [None]
  - DEPRESSION [None]
